FAERS Safety Report 15035668 (Version 1)
Quarter: 2018Q2

REPORT INFORMATION
  Report Type: Spontaneous
  Country: US (occurrence: US)
  Receive Date: 20180620
  Receipt Date: 20180620
  Transmission Date: 20180711
  Serious: Yes (Other)
  Sender: FDA-Public Use
  Company Number: US-WEST-WARD PHARMACEUTICALS CORP.-US-H14001-18-04980

PATIENT
  Age: 73 Year
  Sex: Female

DRUGS (5)
  1. CITALOPRAM [Suspect]
     Active Substance: CITALOPRAM HYDROBROMIDE
     Indication: HALLUCINATION
     Route: 065
  2. CITALOPRAM [Suspect]
     Active Substance: CITALOPRAM HYDROBROMIDE
     Indication: DEPRESSION
  3. QUETIAPINE. [Suspect]
     Active Substance: QUETIAPINE
     Indication: DEPRESSION
  4. QUETIAPINE. [Suspect]
     Active Substance: QUETIAPINE
     Indication: HALLUCINATION
     Route: 065
  5. CARBIDOPA/LEVODOPA [Concomitant]
     Active Substance: CARBIDOPA\LEVODOPA
     Indication: PARKINSON^S DISEASE
     Route: 065

REACTIONS (3)
  - Catatonia [Recovering/Resolving]
  - Psychotic disorder [Recovering/Resolving]
  - Neuroleptic malignant syndrome [Recovering/Resolving]
